FAERS Safety Report 8930316 (Version 1)
Quarter: 2012Q4

REPORT INFORMATION
  Report Type: 
  Country: US (occurrence: US)
  Receive Date: 20121128
  Receipt Date: 20121128
  Transmission Date: 20130627
  Serious: Yes (Other)
  Sender: FDA-Public Use
  Company Number: US-GLAXOSMITHKLINE-A0999798A

PATIENT
  Age: 60 Year
  Sex: Male

DRUGS (9)
  1. VOTRIENT [Suspect]
     Indication: RENAL DISORDER
     Dosage: 800MG Per day
     Route: 048
     Dates: start: 20120920, end: 20121119
  2. PROCHLORPERAZINE [Concomitant]
  3. LEVOBUNOLOL [Concomitant]
  4. LUMIGAN [Concomitant]
  5. GLIPIZIDE [Concomitant]
  6. PRADAXA [Concomitant]
  7. LISINOPRIL [Concomitant]
  8. LEVOTHYROXINE [Concomitant]
  9. METOPROLOL [Concomitant]

REACTIONS (9)
  - Liver injury [Unknown]
  - Nausea [Unknown]
  - Fatigue [Unknown]
  - Decreased appetite [Unknown]
  - Dyspepsia [Unknown]
  - Abdominal discomfort [Unknown]
  - Ageusia [Unknown]
  - Depression [Unknown]
  - Weight decreased [Unknown]
